FAERS Safety Report 17986298 (Version 3)
Quarter: 2021Q1

REPORT INFORMATION
  Report Type: Spontaneous
  Country: JP (occurrence: JP)
  Receive Date: 20200707
  Receipt Date: 20210129
  Transmission Date: 20210419
  Serious: Yes (Other)
  Sender: FDA-Public Use
  Company Number: JP-TEVA-2020-JP-001496J

PATIENT
  Sex: Male

DRUGS (4)
  1. EURODIN 2MG TABLETS [Suspect]
     Active Substance: ESTAZOLAM
     Indication: ANXIETY
     Dosage: 2 MILLIGRAM DAILY;
     Route: 048
  2. EURODIN 2MG TABLETS [Suspect]
     Active Substance: ESTAZOLAM
     Dosage: 1 MILLIGRAM DAILY;
     Route: 048
  3. EURODIN 2MG TABLETS [Suspect]
     Active Substance: ESTAZOLAM
     Dosage: 2 MILLIGRAM DAILY;
     Route: 048
  4. MAINTATE [Concomitant]
     Active Substance: BISOPROLOL FUMARATE
     Route: 048

REACTIONS (5)
  - Pain [Unknown]
  - Limb discomfort [Unknown]
  - Atrial fibrillation [Unknown]
  - Paraesthesia [Unknown]
  - Product use in unapproved indication [Unknown]
